FAERS Safety Report 5702162-2 (Version None)
Quarter: 2008Q2

REPORT INFORMATION
  Report Type: 
  Country: None (occurrence: None)
  Receive Date: 20080411
  Receipt Date: 20080403
  Transmission Date: 20081010
  Serious: Yes (Other)
  Sender: FDA-Public Use
  Company Number: PHEH2008US03449

PATIENT
  Age: 88 Year
  Sex: Female

DRUGS (5)
  1. SEROQUEL [Suspect]
     Dosage: 25 MG, UNK
  2. PROTONIX [Concomitant]
     Indication: STOMACH DISCOMFORT
  3. EXELON [Suspect]
     Dosage: 9.5 MG, UNK
  4. TYLENOL (CAPLET) [Concomitant]
     Indication: ARTHRITIS
  5. LIPITOR [Concomitant]

REACTIONS (15)
  - APPLICATION SITE PRURITUS [None]
  - APPLICATION SITE RASH [None]
  - ASTHENIA [None]
  - DEPRESSED MOOD [None]
  - DIZZINESS [None]
  - ERYTHEMA [None]
  - FATIGUE [None]
  - GAIT DISTURBANCE [None]
  - KNEE OPERATION [None]
  - MORBID THOUGHTS [None]
  - NAUSEA [None]
  - SKIN IRRITATION [None]
  - SOMNOLENCE [None]
  - STOMACH DISCOMFORT [None]
  - VOMITING [None]
